FAERS Safety Report 6409705-4 (Version None)
Quarter: 2009Q4

REPORT INFORMATION
  Report Type: 
  Country: None (occurrence: None)
  Receive Date: 20091022
  Receipt Date: 20091008
  Transmission Date: 20100525
  Serious: Yes (Hospitalization)
  Sender: FDA-Public Use
  Company Number: PHHY2009FR44136

PATIENT
  Age: 39 Year
  Sex: Female

DRUGS (6)
  1. INIPOMP [Suspect]
     Indication: NAUSEA
     Dosage: 20 MG/DAY
     Route: 048
     Dates: start: 20081201, end: 20090125
  2. INIPOMP [Suspect]
     Indication: ABDOMINAL PAIN UPPER
  3. DICLOFENAC [Suspect]
     Indication: PAIN
     Dosage: UNK
     Route: 048
     Dates: start: 20090120, end: 20090125
  4. DICLOFENAC [Suspect]
     Dosage: UNK
     Route: 048
     Dates: start: 20090120, end: 20090125
  5. COLTRAMYL [Suspect]
     Indication: PAIN
     Dosage: UNK
     Route: 048
     Dates: start: 20090120, end: 20090125
  6. IXPRIM [Suspect]
     Dosage: UNK
     Route: 048
     Dates: end: 20090204

REACTIONS (5)
  - CHOLESTASIS [None]
  - HEPATITIS CHOLESTATIC [None]
  - JAUNDICE [None]
  - LYMPHOCYTIC INFILTRATION [None]
  - PRURITUS [None]
